FAERS Safety Report 10946488 (Version 2)
Quarter: 2015Q2

REPORT INFORMATION
  Report Type: Spontaneous
  Country: US (occurrence: US)
  Receive Date: 20150323
  Receipt Date: 20150521
  Transmission Date: 20150821
  Serious: No
  Sender: FDA-Public Use
  Company Number: US-009507513-1503USA008937

PATIENT
  Age: 68 Year
  Sex: Male
  Weight: 87.98 kg

DRUGS (3)
  1. REBETOL [Suspect]
     Active Substance: RIBAVIRIN
     Indication: HEPATITIS C
     Dosage: 600 MG, BID
     Route: 048
     Dates: start: 20140124, end: 20140414
  2. PREVACID [Concomitant]
     Active Substance: LANSOPRAZOLE
  3. SOVALDI [Concomitant]
     Active Substance: SOFOSBUVIR

REACTIONS (6)
  - Urine odour abnormal [Not Recovered/Not Resolved]
  - Parosmia [Not Recovered/Not Resolved]
  - Rash pruritic [Not Recovered/Not Resolved]
  - Skin odour abnormal [Not Recovered/Not Resolved]
  - Abnormal faeces [Not Recovered/Not Resolved]
  - Breath odour [Not Recovered/Not Resolved]

NARRATIVE: CASE EVENT DATE: 20140307
